FAERS Safety Report 19168209 (Version 1)
Quarter: 2021Q2

REPORT INFORMATION
  Report Type: Spontaneous
  Country: US (occurrence: US)
  Receive Date: 20210421
  Receipt Date: 20210421
  Transmission Date: 20210717
  Serious: Yes (Hospitalization)
  Sender: FDA-Public Use
  Company Number: None

PATIENT
  Age: 81 Year
  Sex: Male

DRUGS (6)
  1. SIMVASTATIN. [Concomitant]
     Active Substance: SIMVASTATIN
  2. ELIQUIS [Concomitant]
     Active Substance: APIXABAN
  3. ATENOLOL. [Concomitant]
     Active Substance: ATENOLOL
  4. HUMIRA [Suspect]
     Active Substance: ADALIMUMAB
     Indication: CROHN^S DISEASE
     Route: 058
     Dates: start: 20210221
  5. MESALAMINE. [Concomitant]
     Active Substance: MESALAMINE
  6. FERROUS SULF [Concomitant]
     Active Substance: FERROUS SULFATE

REACTIONS (1)
  - Gastrointestinal haemorrhage [None]

NARRATIVE: CASE EVENT DATE: 20210420
